FAERS Safety Report 8071087-2 (Version None)
Quarter: 2012Q1

REPORT INFORMATION
  Report Type: 
  Country: None (occurrence: None)
  Receive Date: 20120125
  Receipt Date: 20120123
  Transmission Date: 20120608
  Serious: Yes (Hospitalization, Other)
  Sender: FDA-Public Use
  Company Number: JP-PFIZER INC-2012017491

PATIENT
  Age: 38 Year
  Sex: Male

DRUGS (2)
  1. PL GRAN. [Suspect]
     Dosage: 3 G, UNK
     Route: 048
  2. ZITHROMAX [Suspect]
     Dosage: 500 MG, 1X/DAY
     Route: 048
     Dates: start: 20120119, end: 20120120

REACTIONS (6)
  - FLUSHING [None]
  - RASH [None]
  - FACE OEDEMA [None]
  - RHABDOMYOLYSIS [None]
  - RENAL IMPAIRMENT [None]
  - PLATELET COUNT DECREASED [None]
